FAERS Safety Report 18764991 (Version 3)
Quarter: 2021Q1

REPORT INFORMATION
  Report Type: Spontaneous
  Country: FR (occurrence: FR)
  Receive Date: 20210121
  Receipt Date: 20210225
  Transmission Date: 20210419
  Serious: Yes (Death, Life-Threatening, Other)
  Sender: FDA-Public Use
  Company Number: FR-AUROBINDO-AUR-APL-2021-001922

PATIENT
  Age: 58 Year
  Sex: Male
  Weight: 56 kg

DRUGS (9)
  1. GABAPENTIN FILM?COATED TABLETS 800MG [Suspect]
     Active Substance: GABAPENTIN
     Indication: NEURALGIA
  2. GABAPENTINE CAPSULE, HARD 100MG [Suspect]
     Active Substance: GABAPENTIN
     Indication: NEURALGIA
     Dosage: 1 DOSAGE FORM, 3 TIMES A DAY (EACH MORNING, NOON AND EVENING)
     Route: 065
  3. GABAPENTIN. [Suspect]
     Active Substance: GABAPENTIN
     Indication: NEURALGIA
     Dosage: UNK, GABAPENTIN DOSAGE WAS INCREASED IN 2018 AND IN MID?2019
     Route: 065
     Dates: start: 2017, end: 2018
  4. GABAPENTIN. [Suspect]
     Active Substance: GABAPENTIN
     Indication: DEPRESSION
     Dosage: UNK, OVERDOSE
     Route: 065
     Dates: start: 2018, end: 2019
  5. GABAPENTIN FILM?COATED TABLETS 800MG [Suspect]
     Active Substance: GABAPENTIN
     Indication: DEPRESSION
     Dosage: 1 DOSAGE FORM, 3 TIMES A DAY (EACH MORNING, NOON AND EVENING )
     Route: 065
  6. BROMAZEPAM [Concomitant]
     Active Substance: BROMAZEPAM
     Indication: PRODUCT USED FOR UNKNOWN INDICATION
     Dosage: 1 DOSAGE FORM, ONCE A DAY IN EVENING
     Route: 065
  7. PARACETAMOL [Concomitant]
     Active Substance: ACETAMINOPHEN
     Indication: PRODUCT USED FOR UNKNOWN INDICATION
     Dosage: 1000 MILLIGRAM, AS NECESSARY
     Route: 065
  8. GABAPENTIN. [Suspect]
     Active Substance: GABAPENTIN
     Dosage: UNK, GABAPENTIN DOSAGE WAS INCREASED
     Route: 065
     Dates: start: 2019
  9. GABAPENTINE CAPSULE, HARD 100MG [Suspect]
     Active Substance: GABAPENTIN
     Indication: DEPRESSION

REACTIONS (3)
  - Overdose [Fatal]
  - Toxicity to various agents [Fatal]
  - Intentional product misuse [Fatal]
